FAERS Safety Report 15956378 (Version 1)
Quarter: 2019Q1

REPORT INFORMATION
  Report Type: Spontaneous
  Country: TN (occurrence: TN)
  Receive Date: 20190213
  Receipt Date: 20190213
  Transmission Date: 20190417
  Serious: Yes (Other)
  Sender: FDA-Public Use
  Company Number: TN-PFIZER INC-2019061260

PATIENT
  Sex: Female

DRUGS (4)
  1. TYGACIL [Suspect]
     Active Substance: TIGECYCLINE
     Indication: SEPSIS
     Dosage: 50 MG, 2X/DAY (EVERY 12 HOURS)
  2. ECALTA [Suspect]
     Active Substance: ANIDULAFUNGIN
     Dosage: UNK
  3. TYGACIL [Suspect]
     Active Substance: TIGECYCLINE
     Indication: PERITONITIS
     Dosage: 100 MG, UNK
  4. FLUCONAZOLE. [Suspect]
     Active Substance: FLUCONAZOLE
     Dosage: UNK

REACTIONS (4)
  - Gamma-glutamyltransferase increased [Recovering/Resolving]
  - Hepatic failure [Recovering/Resolving]
  - Cholestasis [Recovering/Resolving]
  - Hypercholesterolaemia [Recovering/Resolving]
